FAERS Safety Report 9128785 (Version 1)
Quarter: 2013Q1

REPORT INFORMATION
  Report Type: Spontaneous
  Country: GB (occurrence: GB)
  Receive Date: 20130125
  Receipt Date: 20130125
  Transmission Date: 20140127
  Serious: Yes (Other)
  Sender: FDA-Public Use
  Company Number: GB-ASTRAZENECA-2013SE03611

PATIENT
  Age: 60 Year
  Sex: Male
  Weight: 82 kg

DRUGS (2)
  1. VIMOVO [Suspect]
     Indication: NERVE COMPRESSION
     Dosage: 1 DOSAGE FORM TWO TIMES A DAY
     Route: 048
     Dates: start: 20121218, end: 20121220
  2. STATINS [Concomitant]

REACTIONS (4)
  - Scratch [Recovering/Resolving]
  - Rash generalised [Recovering/Resolving]
  - Pruritus [Recovering/Resolving]
  - Off label use [Unknown]
